FAERS Safety Report 7398061-3 (Version None)
Quarter: 2011Q2

REPORT INFORMATION
  Report Type: 
  Country: None (occurrence: None)
  Receive Date: 20110406
  Receipt Date: 20101210
  Transmission Date: 20111010
  Serious: No
  Sender: FDA-Public Use
  Company Number: US-BAYER-2011-005030

PATIENT
  Sex: Female
  Weight: 10 kg

DRUGS (1)
  1. DOMEBORO [Suspect]
     Dosage: COUNT SIZE UNKNOWN
     Route: 048
     Dates: start: 20101210

REACTIONS (1)
  - NO ADVERSE EVENT [None]
